FAERS Safety Report 8366381-1 (Version None)
Quarter: 2012Q2

REPORT INFORMATION
  Report Type: 
  Country: None (occurrence: None)
  Receive Date: 20120517
  Receipt Date: 20120508
  Transmission Date: 20120825
  Serious: Yes (Death)
  Sender: FDA-Public Use
  Company Number: US-PFIZER INC-2012118087

PATIENT
  Sex: Male

DRUGS (2)
  1. MS CONTIN [Suspect]
     Dosage: 900 MG, UNK
  2. MS CONTIN [Suspect]
     Dosage: 600 MG, UNK

REACTIONS (1)
  - DEATH [None]
